FAERS Safety Report 16558822 (Version 1)
Quarter: 2019Q3

REPORT INFORMATION
  Report Type: Spontaneous
  Country: US (occurrence: US)
  Receive Date: 20190710
  Receipt Date: 20190710
  Transmission Date: 20191004
  Serious: Yes (Disabling)
  Sender: FDA-Public Use
  Company Number: None

PATIENT
  Age: 29 Year
  Sex: Female
  Weight: 56.25 kg

DRUGS (1)
  1. DEXTROAMPHET SACCHARAT, AMPHET ASPARTATE, DEXTROAMPHET SULFATE AND AMPHET SULFAT [Suspect]
     Active Substance: AMPHETAMINE ASPARTATE\AMPHETAMINE SULFATE\DEXTROAMPHETAMINE SACCHARATE\DEXTROAMPHETAMINE SULFATE
     Indication: ATTENTION DEFICIT/HYPERACTIVITY DISORDER
     Dosage: ?          QUANTITY:1 TABLET(S);?
     Route: 048
     Dates: start: 20190701, end: 20190710

REACTIONS (11)
  - Trismus [None]
  - Attention deficit/hyperactivity disorder [None]
  - Symptom recurrence [None]
  - Nausea [None]
  - Inappropriate schedule of product administration [None]
  - Depression [None]
  - Drug ineffective [None]
  - Suicidal ideation [None]
  - Product substitution issue [None]
  - Headache [None]
  - Aggression [None]

NARRATIVE: CASE EVENT DATE: 20190701
